FAERS Safety Report 6342782-8 (Version None)
Quarter: 2009Q3

REPORT INFORMATION
  Report Type: 
  Country: None (occurrence: None)
  Receive Date: 20090908
  Receipt Date: 20000113
  Transmission Date: 20100115
  Serious: No
  Sender: FDA-Public Use
  Company Number: US-ROCHE-95794

PATIENT
  Sex: Female
  Weight: 0.3 kg

DRUGS (4)
  1. GS4104 [Suspect]
     Route: 064
     Dates: start: 19980115, end: 19980212
  2. SYNTHROID [Concomitant]
     Route: 064
     Dates: start: 19930101
  3. ZOLOFT [Concomitant]
     Indication: DEPRESSION
     Route: 064
     Dates: start: 19970501, end: 19980201
  4. ST JOHN'S WORT [Concomitant]
     Indication: DEPRESSION
     Route: 064
     Dates: start: 19980201

REACTIONS (4)
  - BREAST TENDERNESS [None]
  - MATERNAL DRUGS AFFECTING FOETUS [None]
  - PREGNANCY WITH CONTRACEPTIVE DEVICE [None]
  - VAGINAL HAEMORRHAGE [None]
